FAERS Safety Report 21159228 (Version 2)
Quarter: 2022Q3

REPORT INFORMATION
  Report Type: Report from Study
  Country: FR (occurrence: None)
  Receive Date: 20220802
  Receipt Date: 20220922
  Transmission Date: 20221027
  Serious: Yes (Hospitalization)
  Sender: FDA-Public Use
  Company Number: FR-ROCHE-3147263

PATIENT
  Age: 61 Year
  Sex: Male
  Weight: 118 kg

DRUGS (4)
  1. ATEZOLIZUMAB [Suspect]
     Active Substance: ATEZOLIZUMAB
     Indication: Bladder transitional cell carcinoma
     Dosage: C1?CUMULATIVE DOSE SINCE THE 1ST ADMINISTRATION-1200 MG
     Route: 042
     Dates: start: 20220216, end: 20220216
  2. ATEZOLIZUMAB [Suspect]
     Active Substance: ATEZOLIZUMAB
     Dosage: C2?CUMULATIVE DOSE SINCE THE 1ST ADMINISTRATION-2400 MG
     Route: 042
     Dates: start: 20220309, end: 20220309
  3. ATEZOLIZUMAB [Suspect]
     Active Substance: ATEZOLIZUMAB
     Dosage: C3?CUMULATIVE DOSE SINCE THE 1ST ADMINISTRATION-3600 MG
     Route: 042
     Dates: start: 20220331, end: 20220331
  4. ATEZOLIZUMAB [Suspect]
     Active Substance: ATEZOLIZUMAB
     Dosage: C4?CUMULATIVE DOSE SINCE THE 1ST ADMINISTRATION-4800 MG
     Route: 042
     Dates: start: 20220421, end: 20220421

REACTIONS (5)
  - Pyrexia [Recovered/Resolved with Sequelae]
  - Blood pressure decreased [Recovered/Resolved with Sequelae]
  - Vascular access site infection [Recovered/Resolved with Sequelae]
  - Renal failure [Recovered/Resolved with Sequelae]
  - Catheter site erythema [Recovered/Resolved with Sequelae]

NARRATIVE: CASE EVENT DATE: 20220603
